FAERS Safety Report 10223979 (Version 3)
Quarter: 2014Q2

REPORT INFORMATION
  Report Type: Report from Study
  Country: JP (occurrence: JP)
  Receive Date: 20140609
  Receipt Date: 20140627
  Transmission Date: 20141212
  Serious: Yes (Death)
  Sender: FDA-Public Use
  Company Number: JP-PFIZER INC-2014153305

PATIENT
  Age: 51 Year
  Sex: Female
  Weight: 41 kg

DRUGS (8)
  1. XALKORI [Suspect]
     Indication: NON-SMALL CELL LUNG CANCER
     Dosage: 200 MG, 2X/DAY
     Route: 048
     Dates: start: 20130124, end: 20130217
  2. XALKORI [Suspect]
     Dosage: 250 MG, 2X/DAY
     Route: 048
     Dates: start: 20130218, end: 20140219
  3. BROTIZOLAM [Concomitant]
     Dosage: 0.25 MG, 1X/DAY
     Route: 048
     Dates: start: 20130131
  4. RINDERON [Concomitant]
     Dosage: 1 MG, 1X/DAY
     Route: 048
     Dates: start: 20131018
  5. DIART [Concomitant]
     Dosage: 60 MG, 1X/DAY
     Route: 048
     Dates: start: 20131018
  6. FUROSEMIDE [Concomitant]
     Dosage: 10 MG, AS NEEDED
     Route: 048
     Dates: start: 20131117
  7. CARBAZOCHROME SODIUM SULFONATE [Concomitant]
     Dosage: 30 MG, AS NEEDED
     Route: 048
     Dates: start: 20131209
  8. RIKAVARIN [Concomitant]
     Dosage: 250 MG, AS NEEDED
     Route: 048
     Dates: start: 20131209

REACTIONS (2)
  - Disease progression [Fatal]
  - Non-small cell lung cancer [Fatal]
